FAERS Safety Report 21149660 (Version 1)
Quarter: 2022Q3

REPORT INFORMATION
  Report Type: Spontaneous
  Country: FR (occurrence: None)
  Receive Date: 20220729
  Receipt Date: 20220729
  Transmission Date: 20221027
  Serious: Yes (Other)
  Sender: FDA-Public Use
  Company Number: FR-US-Provell Pharmaceuticals LLC-9338541

PATIENT
  Sex: Female

DRUGS (1)
  1. LEVOTHYROXINE [Suspect]
     Active Substance: LEVOTHYROXINE
     Indication: Product used for unknown indication

REACTIONS (13)
  - Lymphoedema [Unknown]
  - Skin ulcer [Unknown]
  - Impaired healing [Unknown]
  - Nosocomial infection [Unknown]
  - Pseudomonas infection [Unknown]
  - Staphylococcal infection [Unknown]
  - Peripheral swelling [Unknown]
  - Swelling face [Unknown]
  - Weight increased [Unknown]
  - Hypersomnia [Unknown]
  - Blood thyroid stimulating hormone increased [Unknown]
  - Illness [Unknown]
  - Asthenia [Unknown]
